FAERS Safety Report 9045283 (Version 1)
Quarter: 2013Q1

REPORT INFORMATION
  Report Type: Report from Study
  Country: US (occurrence: US)
  Receive Date: 20130131
  Receipt Date: 20130131
  Transmission Date: 20140127
  Serious: No
  Sender: FDA-Public Use
  Company Number: US-ABBOTT-12P-163-0991769-00

PATIENT
  Age: 55 Year
  Sex: Male

DRUGS (4)
  1. HUMIRA [Suspect]
     Indication: CROHN^S DISEASE
     Dates: start: 20120626
  2. LISINOPRIL [Concomitant]
     Indication: HYPERTENSION
     Dosage: 20MG DAILY
  3. PANTOPRAZOLE [Concomitant]
     Indication: GASTROOESOPHAGEAL REFLUX DISEASE
     Dosage: 40MG DAILY
  4. BUDESONIDE [Concomitant]
     Indication: INTESTINAL STENOSIS
     Dosage: 3MG DAILY

REACTIONS (1)
  - Injection site bruising [Not Recovered/Not Resolved]
